FAERS Safety Report 10229054 (Version 1)
Quarter: 2014Q2

REPORT INFORMATION
  Report Type: Report from Study
  Country: US (occurrence: US)
  Receive Date: 20140610
  Receipt Date: 20140610
  Transmission Date: 20141212
  Serious: Yes (Other)
  Sender: FDA-Public Use
  Company Number: US-ABBVIE-14P-163-1243708-00

PATIENT
  Sex: Male
  Weight: 68.1 kg

DRUGS (5)
  1. HUMIRA [Suspect]
     Indication: RHEUMATOID ARTHRITIS
     Dates: start: 200805, end: 20140403
  2. METHOTREXATE [Concomitant]
     Indication: RHEUMATOID ARTHRITIS
  3. CALTRATE [Concomitant]
     Indication: OSTEOPENIA
  4. CENTRUM [Concomitant]
     Indication: VITAMIN SUPPLEMENTATION
  5. TYLENOL [Concomitant]
     Indication: PAIN
     Dosage: AS NEEDED

REACTIONS (8)
  - Scoliosis [Recovered/Resolved]
  - Back pain [Recovered/Resolved]
  - Gait disturbance [Recovered/Resolved]
  - Rotator cuff syndrome [Not Recovered/Not Resolved]
  - Joint dislocation [Unknown]
  - Mobility decreased [Not Recovered/Not Resolved]
  - Muscular weakness [Not Recovered/Not Resolved]
  - Muscle spasms [Not Recovered/Not Resolved]
